FAERS Safety Report 17588799 (Version 2)
Quarter: 2020Q2

REPORT INFORMATION
  Report Type: Report from Study
  Country: PL (occurrence: PL)
  Receive Date: 20200327
  Receipt Date: 20200505
  Transmission Date: 20200713
  Serious: Yes (Life-Threatening, Hospitalization, Disabling)
  Sender: FDA-Public Use
  Company Number: PL-SA-2020SA059900

PATIENT

DRUGS (12)
  1. AFLIBERCEPT [Suspect]
     Active Substance: AFLIBERCEPT
     Dosage: 4 MG/KG, QCY
     Route: 042
     Dates: start: 20190530, end: 20190530
  2. KALIPOZ PROLONGATE [Concomitant]
     Active Substance: POTASSIUM CHLORIDE
     Indication: HYPOKALAEMIA
     Dosage: 1 DF, QD
     Route: 048
     Dates: start: 20140101
  3. MAGNEZIN [MAGNESIUM CARBONATE] [Concomitant]
     Indication: HYPOMAGNESAEMIA
     Dosage: 1 DF, BID
     Route: 048
     Dates: start: 20180101
  4. AFLIBERCEPT [Suspect]
     Active Substance: AFLIBERCEPT
     Indication: COLORECTAL CANCER METASTATIC
     Dosage: 4 MG/KG, QCY
     Route: 042
  5. CLEXANE [Concomitant]
     Active Substance: ENOXAPARIN SODIUM
     Indication: THROMBOSIS
     Dosage: UNK
     Route: 058
     Dates: start: 20180101
  6. OMEPRAZOL [OMEPRAZOLE] [Concomitant]
     Active Substance: OMEPRAZOLE
     Indication: GASTROOESOPHAGEAL REFLUX DISEASE
     Dosage: 20 MG
     Route: 048
     Dates: start: 20170101
  7. LISIPROL HCT [Concomitant]
     Indication: HYPERTENSION
     Dosage: 20 MG+12.5 MG, QD
     Route: 048
     Dates: start: 20190101
  8. FOMUKAL [Concomitant]
     Indication: PROPHYLAXIS
     Dosage: UNK UNK, PRN
     Dates: start: 20191022
  9. SOBYCOR [Concomitant]
     Active Substance: BISOPROLOL FUMARATE
     Indication: HYPERTENSION
     Dosage: 5-10 MG, QD
     Route: 048
     Dates: start: 20170101
  10. DEVIKAP [Concomitant]
     Indication: VITAMIN D DEFICIENCY
     Dosage: 4 GTT DROPS, QD
     Route: 048
     Dates: start: 20180101
  11. NYSTATIN. [Concomitant]
     Active Substance: NYSTATIN
     Indication: PROPHYLAXIS
     Dosage: UNK UNK, PRN
     Dates: start: 20191022
  12. BIBLOC [Concomitant]
     Active Substance: BISOPROLOL
     Indication: HYPERTENSION
     Dosage: 5-10 MG, QD
     Route: 048
     Dates: start: 20170101

REACTIONS (10)
  - Hyponatraemia [Not Recovered/Not Resolved]
  - Pneumonia [Not Recovered/Not Resolved]
  - Thrombocytopenia [Not Recovered/Not Resolved]
  - Proteinuria [Not Recovered/Not Resolved]
  - Blood alkaline phosphatase increased [Not Recovered/Not Resolved]
  - Alanine aminotransferase increased [Not Recovered/Not Resolved]
  - Fournier^s gangrene [Recovering/Resolving]
  - Haemorrhoids [Not Recovered/Not Resolved]
  - Haematuria [Not Recovered/Not Resolved]
  - Gamma-glutamyltransferase increased [Not Recovered/Not Resolved]

NARRATIVE: CASE EVENT DATE: 20200302
